FAERS Safety Report 8395961-2 (Version None)
Quarter: 2012Q2

REPORT INFORMATION
  Report Type: 
  Country: None (occurrence: None)
  Receive Date: 20120530
  Receipt Date: 20120521
  Transmission Date: 20120825
  Serious: Yes (Other)
  Sender: FDA-Public Use
  Company Number: US-ROCHE-1071542

PATIENT
  Sex: Female
  Weight: 124.85 kg

DRUGS (24)
  1. DIOVAN [Concomitant]
  2. LEVOTHYROXINE SODIUM [Concomitant]
     Indication: HYPOTHYROIDISM
  3. ASPIRIN [Concomitant]
     Indication: PAIN
     Dosage: 2 TABLETS AS NEEDED
  4. FENTANYL-100 [Concomitant]
  5. METOPROLOL TARTRATE [Concomitant]
  6. RANEXA [Concomitant]
     Indication: ANGINA PECTORIS
  7. TORADOL [Suspect]
     Indication: PRODUCT USED FOR UNKNOWN INDICATION
     Route: 042
  8. LIPITOR [Concomitant]
  9. LISINOPRIL [Concomitant]
  10. ASPIRIN [Concomitant]
     Indication: CARDIAC DISORDER
  11. DEPAKOTE [Concomitant]
  12. OMEPRAZOLE [Concomitant]
     Indication: GASTROOESOPHAGEAL REFLUX DISEASE
  13. SPIRONOLACTONE [Concomitant]
     Indication: BLOOD PRESSURE
  14. HYDROCHLOROTHIAZIDE [Concomitant]
  15. CLONIDINE [Concomitant]
  16. HYDROCORTISONE [Concomitant]
     Indication: PAIN
     Dosage: AS NEEDED
  17. AMITRIPTYLINE HCL [Concomitant]
  18. ATACAND [Concomitant]
  19. HYDROCODONE BITARTRATE [Concomitant]
     Indication: PAIN
     Dosage: 5/325 MG
  20. TRAMADOL HCL [Concomitant]
  21. ATENOLOL [Concomitant]
  22. DILTIAZEM [Concomitant]
  23. AMLODIPINE BESYLATE [Concomitant]
  24. LORAZEPAM [Concomitant]
     Indication: PAIN

REACTIONS (2)
  - RESPIRATORY DISTRESS [None]
  - CHILLS [None]
